FAERS Safety Report 7172218-9 (Version None)
Quarter: 2010Q4

REPORT INFORMATION
  Report Type: 
  Country: None (occurrence: None)
  Receive Date: 20101217
  Receipt Date: 20100202
  Transmission Date: 20110411
  Serious: Yes (Other)
  Sender: FDA-Public Use
  Company Number: US-AMGEN-TCS388112

PATIENT

DRUGS (2)
  1. ENBREL [Suspect]
     Indication: RHEUMATOID ARTHRITIS
     Dosage: 50 MG, QWK
     Route: 058
     Dates: start: 20100123
  2. METHOTREXATE [Concomitant]
     Dosage: 2.5 MG, QWK
     Dates: start: 20090801

REACTIONS (5)
  - ARTHRALGIA [None]
  - HYPERSENSITIVITY [None]
  - JOINT STIFFNESS [None]
  - JOINT SWELLING [None]
  - ULNAR NERVE INJURY [None]
